FAERS Safety Report 10810270 (Version 3)
Quarter: 2015Q1

REPORT INFORMATION
  Report Type: Spontaneous
  Country: US (occurrence: None)
  Receive Date: 20150212
  Receipt Date: 20150319
  Transmission Date: 20150721
  Serious: Yes (Hospitalization)
  Sender: FDA-Public Use
  Company Number: 1713747-2015-99951

PATIENT
  Age: 38 Year
  Sex: Female
  Weight: 66 kg

DRUGS (26)
  1. SODIUM BICARBONATE. [Concomitant]
     Active Substance: SODIUM BICARBONATE
  2. TRAZODONE [Concomitant]
     Active Substance: TRAZODONE HYDROCHLORIDE
  3. HUMALOG [Concomitant]
     Active Substance: INSULIN LISPRO
  4. GRANUFLO [Concomitant]
     Active Substance: ACETIC ACID\SODIUM ACETATE
  5. FMC BLOOD LINES [Concomitant]
  6. ZOLOFT [Concomitant]
     Active Substance: SERTRALINE HYDROCHLORIDE
  7. COUMADIN [Concomitant]
     Active Substance: WARFARIN SODIUM
  8. BABY ASPIRIN [Concomitant]
     Active Substance: ASPIRIN
  9. LISINOPRIL. [Concomitant]
     Active Substance: LISINOPRIL
  10. ZEMPLAR [Concomitant]
     Active Substance: PARICALCITOL
  11. TUMS [Concomitant]
     Active Substance: CALCIUM CARBONATE
  12. LOVENOX [Concomitant]
     Active Substance: ENOXAPARIN SODIUM
  13. 0.9% SODIUM CHLORIDE [Suspect]
     Active Substance: SODIUM CHLORIDE
     Indication: CHRONIC KIDNEY DISEASE
     Dosage: HEMODIALYSIS
     Route: 010
     Dates: start: 20130107
  14. EPOGEN [Concomitant]
     Active Substance: ERYTHROPOIETIN
  15. FRESENIUS 2008K DIALYSIS MACHINE [Concomitant]
  16. RENVELA [Concomitant]
     Active Substance: SEVELAMER CARBONATE
  17. COREG [Concomitant]
     Active Substance: CARVEDILOL
  18. 180NRE OPTIFLUX [Concomitant]
  19. NORMAL SALINE [Concomitant]
     Active Substance: SODIUM CHLORIDE
  20. NEURONTIN [Concomitant]
     Active Substance: GABAPENTIN
  21. GABAPENTIN. [Concomitant]
     Active Substance: GABAPENTIN
  22. LANTUS [Concomitant]
     Active Substance: INSULIN GLARGINE
  23. NORVASC [Concomitant]
     Active Substance: AMLODIPINE BESYLATE
  24. NATURALYTE [Concomitant]
     Active Substance: ACETIC ACID\SODIUM ACETATE
  25. CALCIFEROL [Concomitant]
     Active Substance: ERGOCALCIFEROL
  26. NEPHRO-CAPS [Concomitant]

REACTIONS (10)
  - Unresponsive to stimuli [None]
  - Left ventricular dysfunction [None]
  - Cardiomyopathy [None]
  - Seizure [None]
  - Dialysis related complication [None]
  - Cardiac stress test abnormal [None]
  - Pulmonary hypertension [None]
  - Urinary incontinence [None]
  - Dizziness [None]
  - Treatment noncompliance [None]

NARRATIVE: CASE EVENT DATE: 20130107
